FAERS Safety Report 9652128 (Version 1)
Quarter: 2013Q4

REPORT INFORMATION
  Report Type: Spontaneous
  Country: US (occurrence: None)
  Receive Date: 20131028
  Receipt Date: 20131028
  Transmission Date: 20140711
  Serious: Yes (Death, Hospitalization, Disabling, Other)
  Sender: FDA-Public Use
  Company Number: None

PATIENT
  Age: 81 Year
  Sex: Male
  Weight: 68.04 kg

DRUGS (1)
  1. XARELTO [Suspect]
     Indication: THROMBOSIS
     Route: 048
     Dates: start: 20130918, end: 20130919

REACTIONS (6)
  - Abdominal pain upper [None]
  - Blood blister [None]
  - Contusion [None]
  - Neuralgia [None]
  - Skin exfoliation [None]
  - Blister rupture [None]
